FAERS Safety Report 4762587-9 (Version None)
Quarter: 2005Q3

REPORT INFORMATION
  Report Type: 
  Country: None (occurrence: None)
  Receive Date: 20050907
  Receipt Date: 20050712
  Transmission Date: 20060218
  Serious: Yes (Hospitalization)
  Sender: FDA-Public Use
  Company Number: US-GLAXOSMITHKLINE-A0565920A

PATIENT
  Age: 80 Year
  Sex: Female
  Weight: 72.3 kg

DRUGS (8)
  1. AVANDIA [Suspect]
     Indication: DIABETES MELLITUS NON-INSULIN-DEPENDENT
     Dosage: 4MG PER DAY
     Route: 048
     Dates: start: 20050101
  2. GLUCOPHAGE [Concomitant]
  3. GLIPIZIDE [Concomitant]
  4. TRICOR [Concomitant]
  5. LOPRESSOR [Concomitant]
  6. HYDROCHLOROTHIAZIDE [Concomitant]
  7. FOSAMAX [Concomitant]
  8. BENICAR [Concomitant]

REACTIONS (3)
  - DRUG INEFFECTIVE [None]
  - HIP ARTHROPLASTY [None]
  - REHABILITATION THERAPY [None]
